FAERS Safety Report 15218467 (Version 3)
Quarter: 2018Q4

REPORT INFORMATION
  Report Type: Spontaneous
  Country: JP (occurrence: JP)
  Receive Date: 20180730
  Receipt Date: 20181019
  Transmission Date: 20190204
  Serious: Yes (Hospitalization)
  Sender: FDA-Public Use
  Company Number: JP-009507513-1807JPN012574

PATIENT
  Sex: Female

DRUGS (1)
  1. GLACTIV [Suspect]
     Active Substance: SITAGLIPTIN
     Indication: TYPE 2 DIABETES MELLITUS
     Dosage: 100 MG, STRENGTH: 12.5MG,25MG,50MG,100MG
     Route: 048

REACTIONS (3)
  - Anaemia [Recovered/Resolved]
  - Product prescribing error [Unknown]
  - Overdose [Unknown]
